FAERS Safety Report 5391757-4 (Version None)
Quarter: 2007Q3

REPORT INFORMATION
  Report Type: 
  Country: None (occurrence: None)
  Receive Date: 20070719
  Receipt Date: 20070711
  Transmission Date: 20080115
  Serious: Yes (Hospitalization)
  Sender: FDA-Public Use
  Company Number: US-GENENTECH-244338

PATIENT
  Sex: Male
  Weight: 101.15 kg

DRUGS (2)
  1. BEVACIZUMAB [Suspect]
     Indication: GLIOBLASTOMA MULTIFORME
     Dosage: 1011.5 MG, Q2W
     Route: 042
     Dates: start: 20061018
  2. IRINOTECAN HCL [Suspect]
     Indication: GLIOBLASTOMA MULTIFORME
     Dosage: 762 MG, Q2W
     Route: 042
     Dates: start: 20061018

REACTIONS (1)
  - PYREXIA [None]
